FAERS Safety Report 24286573 (Version 1)
Quarter: 2024Q3

REPORT INFORMATION
  Report Type: Spontaneous
  Country: US (occurrence: None)
  Receive Date: 20240903
  Receipt Date: 20240903
  Transmission Date: 20241016
  Serious: No
  Sender: Public
  Company Number: None

PATIENT
  Sex: Female

DRUGS (2)
  1. ICATIBANT ACETATE [Suspect]
     Active Substance: ICATIBANT ACETATE
     Indication: Complement factor abnormal
     Dosage: OTHER QUANTITY : 30MG/3ML;?FREQUENCY : AS NEEDED;?
     Route: 058
     Dates: start: 202302
  2. FIRAZYR SYR (3-PAK) [Concomitant]

REACTIONS (2)
  - Facial paresis [None]
  - Laryngeal disorder [None]
